FAERS Safety Report 6434610-7 (Version None)
Quarter: 2009Q4

REPORT INFORMATION
  Report Type: 
  Country: None (occurrence: None)
  Receive Date: 20091110
  Receipt Date: 20091027
  Transmission Date: 20100525
  Serious: Yes (Hospitalization)
  Sender: FDA-Public Use
  Company Number: B0516206A

PATIENT
  Age: 40 Year
  Sex: Male

DRUGS (6)
  1. SERETIDE [Suspect]
  2. FLUTICASONE [Suspect]
  3. LOPINAVIR AND RITONAVIR [Suspect]
     Indication: HIV INFECTION
     Route: 048
  4. VALACYCLOVIR HCL [Concomitant]
  5. MONTELUKAST [Concomitant]
  6. TRUVADA [Concomitant]

REACTIONS (3)
  - ADRENAL INSUFFICIENCY [None]
  - DRUG INTERACTION [None]
  - LOSS OF CONSCIOUSNESS [None]
